FAERS Safety Report 15998263 (Version 1)
Quarter: 2019Q1

REPORT INFORMATION
  Report Type: Spontaneous
  Country: US (occurrence: US)
  Receive Date: 20190223
  Receipt Date: 20190223
  Transmission Date: 20190418
  Serious: No
  Sender: FDA-Public Use
  Company Number: US-009507513-1902USA005795

PATIENT
  Sex: Female

DRUGS (8)
  1. DARZALEX [Concomitant]
     Active Substance: DARATUMUMAB
     Dosage: 100MG/5M
  2. AUGMENTIN [Concomitant]
     Active Substance: AMOXICILLIN\CLAVULANATE POTASSIUM
     Dosage: 875-125MG
  3. ACETAZOLAMIDE. [Concomitant]
     Active Substance: ACETAZOLAMIDE
     Dosage: 500MG ER
  4. ACYCLOVIR. [Concomitant]
     Active Substance: ACYCLOVIR
  5. INTRON A [Suspect]
     Active Substance: INTERFERON ALFA-2B
     Indication: PLASMACYTOMA
     Dosage: 300,000 UNITS (0.05ML), 3 TIMES A WEEK (MON, WED, FRI)
     Route: 023
  6. ERYTHROMYCIN. [Concomitant]
     Active Substance: ERYTHROMYCIN
     Dosage: 5 MG/GM
  7. LIDOCAINE (+) PRILOCAINE [Concomitant]
  8. METHYLPREDNISOLONE. [Concomitant]
     Active Substance: METHYLPREDNISOLONE

REACTIONS (3)
  - Skin discolouration [Unknown]
  - Asthenia [Unknown]
  - Fatigue [Unknown]
